FAERS Safety Report 6381613-7 (Version None)
Quarter: 2009Q3

REPORT INFORMATION
  Report Type: 
  Country: None (occurrence: None)
  Receive Date: 20090925
  Receipt Date: 20090918
  Transmission Date: 20100115
  Serious: Yes (Death, Hospitalization)
  Sender: FDA-Public Use
  Company Number: UKP09000160

PATIENT
  Sex: Female

DRUGS (1)
  1. ASACOL [Suspect]

REACTIONS (2)
  - ALLERGIC RESPIRATORY SYMPTOM [None]
  - RESPIRATORY FAILURE [None]
